FAERS Safety Report 9471577 (Version 2)
Quarter: 2013Q3

REPORT INFORMATION
  Report Type: Spontaneous
  Country: JP (occurrence: None)
  Receive Date: 20130819
  Receipt Date: 20130912
  Transmission Date: 20140515
  Serious: Yes (Other)
  Sender: FDA-Public Use
  Company Number: EUS-2013-00493

PATIENT
  Age: 11 Year
  Sex: Male

DRUGS (9)
  1. ASPARAGINASE [Suspect]
     Indication: B PRECURSOR TYPE ACUTE LEUKAEMIA
  2. LEUNASE (ASPARAGINASE) [Concomitant]
     Indication: B PRECURSOR TYPE ACUTE LEUKAEMIA
  3. VINCRISTINE (VINCRISTINE) (VINCRISTINE) [Concomitant]
  4. 4-O TETRAHYDROPYRANYLADRIAMYCIN (DOXORUBICIN) (DOXORUBICIN) [Concomitant]
  5. CYTARABINE (CYTARABINE) (CYTARABINE) [Concomitant]
  6. 6-MERCAPTOPURINE (MERCAPTOPURINE) (MERCAPTOPURINE) [Concomitant]
  7. CYCLOPHOSPHAMIDE (CYCLOPHOSPHAMIDE) (CYCLOPHOSPHAMIDE) [Concomitant]
  8. METHOTREXATE (METHOTREXATE) (METHOTREXATE) [Concomitant]
  9. PREDNISONE (PREDNISONE) [Concomitant]

REACTIONS (7)
  - Vomiting [None]
  - Complex partial seizures [None]
  - Loss of consciousness [None]
  - Temporal lobe epilepsy [None]
  - Hippocampal sclerosis [None]
  - Cerebral atrophy [None]
  - Dyskinesia [None]
